FAERS Safety Report 6401096-8 (Version None)
Quarter: 2009Q4

REPORT INFORMATION
  Report Type: 
  Country: None (occurrence: None)
  Receive Date: 20091015
  Receipt Date: 20091013
  Transmission Date: 20100525
  Serious: Yes (Hospitalization)
  Sender: FDA-Public Use
  Company Number: JP-B.I. PHARMACEUTICALS,INC./RIDGEFIELD-2009-BP-11919NB

PATIENT
  Age: 83 Year
  Sex: Female

DRUGS (3)
  1. MICOMBI COMBINATION [Suspect]
     Indication: HYPERTENSION
     Dosage: TELMISARTAN 40MG/HYDROCHLOROTHIAZIDE 12.5MG
     Route: 048
     Dates: start: 20090826
  2. ARICEPT [Concomitant]
     Indication: DEMENTIA ALZHEIMER'S TYPE
     Dosage: 1DF
     Route: 048
  3. NORVASC [Concomitant]
     Indication: HYPERTENSION
     Dosage: 1DF
     Route: 048

REACTIONS (1)
  - EPILEPSY [None]
